FAERS Safety Report 20003696 (Version 1)
Quarter: 2021Q4

REPORT INFORMATION
  Report Type: Spontaneous
  Country: DK (occurrence: DK)
  Receive Date: 20211027
  Receipt Date: 20211027
  Transmission Date: 20220303
  Serious: Yes (Other)
  Sender: FDA-Public Use
  Company Number: DK-ASTRAZENECA-2021A239481

PATIENT
  Age: 57 Year
  Sex: Female

DRUGS (8)
  1. GEFITINIB [Suspect]
     Active Substance: GEFITINIB
     Indication: Product used for unknown indication
     Dosage: UNK
     Route: 048
  2. ERLOTINIB [Suspect]
     Active Substance: ERLOTINIB
     Indication: Non-small cell lung cancer metastatic
     Dosage: UNK
     Route: 065
  3. OSIMERTINIB [Suspect]
     Active Substance: OSIMERTINIB
     Indication: Non-small cell lung cancer
     Dosage: UNK, 2 ND LINE
     Route: 048
  4. ETOPOSIDE [Concomitant]
     Active Substance: ETOPOSIDE
     Indication: Chemotherapy
     Dosage: UNK UNK, CYCLE, 3 CYCLES
  5. CARBOPLATIN [Concomitant]
     Active Substance: CARBOPLATIN
     Indication: Chemotherapy
     Dosage: UNK UNK, CYCLE, 3 CYCLES
  6. PEMETREXED [Concomitant]
     Active Substance: PEMETREXED
     Indication: Chemotherapy
     Dosage: UNK UNK, CYCLE, 3 CYCLES
  7. CARBOPLATIN;PEMETREXED [Concomitant]
     Indication: Non-small cell lung cancer metastatic
     Dosage: UNK UNK, CYCLE
  8. CARBOPLATIN W/ETOPOSIDE [Concomitant]
     Dosage: UNK UNK, CYCLE

REACTIONS (9)
  - Multiple-drug resistance [Unknown]
  - Acquired gene mutation [Unknown]
  - Malignant transformation [Unknown]
  - Pulmonary embolism [Unknown]
  - EGFR gene mutation [Not Recovered/Not Resolved]
  - Small cell carcinoma [Unknown]
  - Malignant neoplasm progression [Unknown]
  - Drug resistance [Unknown]
  - Drug ineffective [Unknown]
